FAERS Safety Report 18503516 (Version 3)
Quarter: 2021Q3

REPORT INFORMATION
  Report Type: Spontaneous
  Country: AT (occurrence: AT)
  Receive Date: 20201113
  Receipt Date: 20210701
  Transmission Date: 20211014
  Serious: Yes (Other)
  Sender: FDA-Public Use
  Company Number: NVSC2020AT303640

PATIENT
  Age: 55 Year
  Sex: Male

DRUGS (10)
  1. MYCOPHENOLATE MOFETIL. [Suspect]
     Active Substance: MYCOPHENOLATE MOFETIL
     Indication: TRANSPLANT
     Dosage: UNK
     Route: 065
  2. ALEMTUZUMAB [Suspect]
     Active Substance: ALEMTUZUMAB
     Indication: IMMUNOSUPPRESSANT DRUG THERAPY
     Dosage: UNK
     Route: 065
  3. TACROLIMUS. [Suspect]
     Active Substance: TACROLIMUS
     Indication: TRANSPLANT
     Dosage: 8 DF (8 NG/ML)
     Route: 065
  4. TACROLIMUS. [Suspect]
     Active Substance: TACROLIMUS
     Indication: IMMUNOSUPPRESSANT DRUG THERAPY
  5. NULOJIX [Suspect]
     Active Substance: BELATACEPT
     Indication: TRANSPLANT
     Dosage: 5 MG/KG/6 WEEKS
     Route: 065
  6. MYCOPHENOLATE MOFETIL. [Suspect]
     Active Substance: MYCOPHENOLATE MOFETIL
     Indication: IMMUNOSUPPRESSANT DRUG THERAPY
  7. BELATACEPT [Suspect]
     Active Substance: BELATACEPT
     Indication: NEPHROPATHY
     Dosage: UNK
     Route: 065
  8. MYCOPHENOLATE MOFETIL. [Suspect]
     Active Substance: MYCOPHENOLATE MOFETIL
     Indication: IMMUNOSUPPRESSANT DRUG THERAPY
  9. NULOJIX [Suspect]
     Active Substance: BELATACEPT
     Indication: IMMUNOSUPPRESSANT DRUG THERAPY
  10. NULOJIX [Suspect]
     Active Substance: BELATACEPT
     Indication: NEPHROPATHY

REACTIONS (11)
  - Enterococcal infection [Unknown]
  - Hypertension [Unknown]
  - Urosepsis [Unknown]
  - Transplant rejection [Recovered/Resolved]
  - Acute kidney injury [Unknown]
  - Product use in unapproved indication [Unknown]
  - Cytomegalovirus infection [Unknown]
  - Subdural haematoma [Unknown]
  - Drug ineffective [Unknown]
  - Skin papilloma [Unknown]
  - Herpes virus infection [Unknown]
